FAERS Safety Report 5711259-2 (Version None)
Quarter: 2008Q2

REPORT INFORMATION
  Report Type: 
  Country: None (occurrence: None)
  Receive Date: 20080421
  Receipt Date: 20080421
  Transmission Date: 20081010
  Serious: Yes (Life-Threatening, Hospitalization, Disabling)
  Sender: FDA-Public Use
  Company Number: None

PATIENT
  Sex: Male
  Weight: 72.5755 kg

DRUGS (1)
  1. HEPARIN [Suspect]

REACTIONS (4)
  - NAUSEA [None]
  - POST PROCEDURAL HAEMORRHAGE [None]
  - PROCEDURAL HYPOTENSION [None]
  - VOMITING [None]
